FAERS Safety Report 12947824 (Version 1)
Quarter: 2016Q4

REPORT INFORMATION
  Report Type: Report from Study
  Country: US (occurrence: US)
  Receive Date: 20161117
  Receipt Date: 20161117
  Transmission Date: 20170207
  Serious: No
  Sender: FDA-Public Use
  Company Number: US-AMGEN-USASL2016157571

PATIENT
  Age: 34 Year
  Sex: Male

DRUGS (2)
  1. ENBREL [Suspect]
     Active Substance: ETANERCEPT
     Indication: ANKYLOSING SPONDYLITIS
     Dosage: 50 MG, QWK
     Route: 065
  2. ENBREL [Suspect]
     Active Substance: ETANERCEPT
     Dosage: 50 UNK, UNK (9 TO 11 DAYS AFTER INJECTION TO TAKE ANOTHER ENBREL DOSE)
     Route: 065

REACTIONS (6)
  - Hypertension [Unknown]
  - Intentional product misuse [Unknown]
  - Musculoskeletal pain [Unknown]
  - Back pain [Unknown]
  - Neck pain [Unknown]
  - Off label use [Unknown]
